FAERS Safety Report 13908887 (Version 1)
Quarter: 2017Q3

REPORT INFORMATION
  Report Type: Report from Study
  Country: US (occurrence: US)
  Receive Date: 20170828
  Receipt Date: 20170828
  Transmission Date: 20171127
  Serious: Yes (Other)
  Sender: FDA-Public Use
  Company Number: US-AMGEN-USASL2017128837

PATIENT
  Age: 82 Year
  Sex: Female
  Weight: 98.41 kg

DRUGS (12)
  1. ALLOPURINOL. [Concomitant]
     Active Substance: ALLOPURINOL
     Dosage: 100 MG, BID (30 DAYS) 11 REFILLS
  2. LISINOPRIL. [Concomitant]
     Active Substance: LISINOPRIL
     Dosage: 40 MG, QD (90 DAYS) 3 REFILLS
  3. FISH OIL [Concomitant]
     Active Substance: FISH OIL
     Dosage: 1000 MG, BID (30 DAYS) 11 REFILLS
  4. OMEPRAZOLE. [Concomitant]
     Active Substance: OMEPRAZOLE
     Dosage: 20 MG, QD (30 DAYS) 11 REFILLS
  5. TRAMADOL HCL [Concomitant]
     Active Substance: TRAMADOL HYDROCHLORIDE
     Dosage: 200 MG, QD 90 DAYS (1 REFILLS)
  6. LEVOTHYROXINE SODIUM. [Concomitant]
     Active Substance: LEVOTHYROXINE SODIUM
     Dosage: 50 MUG, QD (30 DAYS) 11 REFILLS
     Route: 048
  7. PRAVASTATIN SODIUM. [Concomitant]
     Active Substance: PRAVASTATIN SODIUM
     Dosage: 20 MG, QD 90 DAYS (3 REFILLS)
  8. CALCIUM [Concomitant]
     Active Substance: CALCIUM
     Dosage: 600 MG, QD (30 DAYS) 11 REFILLS
  9. VITAMIN D [Concomitant]
     Active Substance: CHOLECALCIFEROL
     Dosage: 2000 UNIT, QD (30 DAYS) 9 REFILLS
  10. PROCRIT [Suspect]
     Active Substance: ERYTHROPOIETIN
     Indication: ANAEMIA OF CHRONIC DISEASE
     Dosage: 20,000 UNIT/ML, QMO 90 DAYS (3 REFILLS)
     Route: 058
  11. PRESERVISION AREDS [Concomitant]
     Active Substance: MINERALS\VITAMINS
     Dosage: 2 DF, BID (30 DAYS) 11 REFILLS
  12. ASPIRIN. [Concomitant]
     Active Substance: ASPIRIN
     Dosage: 81 MG, QD (30 DAYS) 11 REFILLS

REACTIONS (10)
  - Syncope [Unknown]
  - Osteoarthritis [Unknown]
  - Lumbar spinal stenosis [Unknown]
  - Obesity [Unknown]
  - Bradycardia [Unknown]
  - Hyperthyroidism [Unknown]
  - Swelling [Unknown]
  - Thermal burn [Unknown]
  - Fatigue [Unknown]
  - High frequency ablation [Unknown]

NARRATIVE: CASE EVENT DATE: 2010
